FAERS Safety Report 8378552-9 (Version None)
Quarter: 2012Q2

REPORT INFORMATION
  Report Type: 
  Country: None (occurrence: None)
  Receive Date: 20120522
  Receipt Date: 20120516
  Transmission Date: 20120825
  Serious: Yes (Hospitalization)
  Sender: FDA-Public Use
  Company Number: DE-ELI_LILLY_AND_COMPANY-DE201203009143

PATIENT
  Age: 75 Year
  Sex: Female

DRUGS (7)
  1. BYDUREON [Suspect]
     Indication: TYPE 2 DIABETES MELLITUS
     Dosage: 2 MG, UNKNOWN
     Route: 058
     Dates: start: 20120118, end: 20120223
  2. GLYBURIDE [Concomitant]
     Dosage: 8.75 MG, QD
  3. METHOTREXATE [Concomitant]
     Dosage: 10 MG, WEEKLY (1/W)
  4. BISOPROLOL FUMARATE [Concomitant]
     Dosage: 2.5 MG, EACH EVENING
  5. ENALAPRIL COMP [Concomitant]
     Dosage: 0.5 DF, EACH MORNING
  6. FOLIC ACID [Concomitant]
     Dosage: 5 MG, WEEKLY (1/W)
  7. SIMVASTATIN [Concomitant]
     Dosage: 10 MG, QD

REACTIONS (2)
  - MYOCARDITIS [None]
  - VIRAL PERICARDITIS [None]
